FAERS Safety Report 16846395 (Version 2)
Quarter: 2020Q3

REPORT INFORMATION
  Report Type: Spontaneous
  Country: US (occurrence: US)
  Receive Date: 20190924
  Receipt Date: 20200923
  Transmission Date: 20201102
  Serious: Yes (Hospitalization, Other)
  Sender: FDA-Public Use
  Company Number: US-GILEAD-2019-0429246

PATIENT
  Age: 43 Year
  Sex: Female

DRUGS (28)
  1. FENTANYL. [Concomitant]
     Active Substance: FENTANYL
  2. FUROSEMIDE. [Concomitant]
     Active Substance: FUROSEMIDE
  3. CYPROHEPTADINE. [Concomitant]
     Active Substance: CYPROHEPTADINE
  4. DIPHENHYDRAMINE. [Concomitant]
     Active Substance: DIPHENHYDRAMINE
  5. CLONIDINE. [Concomitant]
     Active Substance: CLONIDINE
  6. EMTRIVA [Concomitant]
     Active Substance: EMTRICITABINE
  7. TRUVADA [Suspect]
     Active Substance: EMTRICITABINE\TENOFOVIR DISOPROXIL FUMARATE
     Indication: HIV INFECTION
     Dosage: UNK
     Route: 048
     Dates: start: 20120220, end: 201203
  8. VALACYCLOVIR [Concomitant]
     Active Substance: VALACYCLOVIR HYDROCHLORIDE
  9. CALCIUM [Concomitant]
     Active Substance: CALCIUM
  10. ASPIRIN (E.C.) [Concomitant]
     Active Substance: ASPIRIN
  11. FLUOXETINE [Concomitant]
     Active Substance: FLUOXETINE HYDROCHLORIDE
  12. KALETRA [Concomitant]
     Active Substance: LOPINAVIR\RITONAVIR
  13. ATRIPLA [Suspect]
     Active Substance: EFAVIRENZ\EMTRICITABINE\TENOFOVIR DISOPROXIL FUMARATE
     Indication: HIV INFECTION
     Dosage: UNK
     Route: 048
     Dates: start: 201210, end: 201506
  14. IBUPROFEN. [Concomitant]
     Active Substance: IBUPROFEN
  15. OXYCODONE [Concomitant]
     Active Substance: OXYCODONE
  16. VIREAD [Suspect]
     Active Substance: TENOFOVIR DISOPROXIL FUMARATE
     Indication: HIV INFECTION
     Dosage: UNK
     Route: 048
     Dates: start: 20170512, end: 20180201
  17. SULFAMETHOXAZOLE [Concomitant]
     Active Substance: SULFAMETHOXAZOLE
  18. LEVOTHYROXINE. [Concomitant]
     Active Substance: LEVOTHYROXINE
  19. JULUCA [Concomitant]
     Active Substance: DOLUTEGRAVIR SODIUM\RILPIVIRINE HYDROCHLORIDE
  20. REYATAZ [Concomitant]
     Active Substance: ATAZANAVIR SULFATE
  21. BRILINTA [Concomitant]
     Active Substance: TICAGRELOR
  22. TRUVADA [Suspect]
     Active Substance: EMTRICITABINE\TENOFOVIR DISOPROXIL FUMARATE
     Dosage: UNK
     Route: 065
     Dates: start: 20160108, end: 201702
  23. NORVIR [Concomitant]
     Active Substance: RITONAVIR
  24. ISENTRESS [Concomitant]
     Active Substance: RALTEGRAVIR POTASSIUM
  25. GLIMEPIRIDE. [Concomitant]
     Active Substance: GLIMEPIRIDE
  26. ONDANSETRON [Concomitant]
     Active Substance: ONDANSETRON
  27. GLIPIZIDE. [Concomitant]
     Active Substance: GLIPIZIDE
  28. PRAVASTATIN. [Concomitant]
     Active Substance: PRAVASTATIN

REACTIONS (11)
  - Anhedonia [Not Recovered/Not Resolved]
  - Loss of personal independence in daily activities [Not Recovered/Not Resolved]
  - Economic problem [Not Recovered/Not Resolved]
  - End stage renal disease [Not Recovered/Not Resolved]
  - Renal failure [Not Recovered/Not Resolved]
  - Pain [Not Recovered/Not Resolved]
  - Fatigue [Not Recovered/Not Resolved]
  - Emotional distress [Not Recovered/Not Resolved]
  - Anxiety [Not Recovered/Not Resolved]
  - Renal disorder [Unknown]
  - Quality of life decreased [Not Recovered/Not Resolved]

NARRATIVE: CASE EVENT DATE: 20150314
